FAERS Safety Report 22247524 (Version 1)
Quarter: 2023Q2

REPORT INFORMATION
  Report Type: Spontaneous
  Country: FR (occurrence: FR)
  Receive Date: 20230425
  Receipt Date: 20230425
  Transmission Date: 20230722
  Serious: Yes (Hospitalization, Other)
  Sender: FDA-Public Use
  Company Number: FR-AFSSAPS-TS2023000439

PATIENT
  Age: 80 Year
  Sex: Male
  Weight: 73 kg

DRUGS (2)
  1. FUROSEMIDE [Interacting]
     Active Substance: FUROSEMIDE
     Indication: Urine output decreased
     Dosage: 80 MILLIGRAM
     Route: 042
     Dates: start: 20230320
  2. METHOTREXATE [Interacting]
     Active Substance: METHOTREXATE
     Indication: Leukaemia
     Dosage: 1890 MILLIGRAM
     Route: 042
     Dates: start: 20230321, end: 20230322

REACTIONS (2)
  - Acute kidney injury [Recovering/Resolving]
  - Incorrect disposal of product [Recovered/Resolved]

NARRATIVE: CASE EVENT DATE: 20230322
